FAERS Safety Report 8334362-X (Version None)
Quarter: 2012Q2

REPORT INFORMATION
  Report Type: 
  Country: None (occurrence: None)
  Receive Date: 20120503
  Receipt Date: 20120426
  Transmission Date: 20120825
  Serious: Yes (Other)
  Sender: FDA-Public Use
  Company Number: US-ABBOTT-12P-163-0927642-00

PATIENT
  Age: 39 Year
  Sex: Female

DRUGS (6)
  1. UNKNOWN BONE PILL [Concomitant]
     Indication: RHEUMATOID ARTHRITIS
  2. METHOTREXATE [Concomitant]
     Indication: PRODUCT USED FOR UNKNOWN INDICATION
  3. HUMIRA [Suspect]
     Indication: RHEUMATOID ARTHRITIS
     Dates: start: 20111201
  4. CALCIUM [Concomitant]
     Indication: PRODUCT USED FOR UNKNOWN INDICATION
  5. HYDROCODONE [Concomitant]
     Indication: PAIN
  6. AMITRIPTYLINE HCL [Concomitant]
     Indication: INSOMNIA

REACTIONS (6)
  - RHEUMATOID NODULE [None]
  - FEMALE GENITAL OPERATION [None]
  - NEURALGIA [None]
  - DEVICE DIFFICULT TO USE [None]
  - DRUG INEFFECTIVE [None]
  - INJECTION SITE PAIN [None]
